FAERS Safety Report 21661057 (Version 1)
Quarter: 2022Q4

REPORT INFORMATION
  Report Type: Spontaneous
  Country: RU (occurrence: None)
  Receive Date: 20221130
  Receipt Date: 20221130
  Transmission Date: 20230113
  Serious: Yes (Other)
  Sender: FDA-Public Use
  Company Number: RU-ROCHE-3225237

PATIENT
  Age: 70 Year
  Sex: Male

DRUGS (1)
  1. ATEZOLIZUMAB [Suspect]
     Active Substance: ATEZOLIZUMAB
     Indication: Bladder cancer
     Route: 065

REACTIONS (6)
  - Metastases to lymph nodes [Unknown]
  - Metastases to liver [Unknown]
  - Dyspnoea [Unknown]
  - Asthenia [Unknown]
  - Pain in extremity [Unknown]
  - Productive cough [Unknown]
